FAERS Safety Report 23343294 (Version 1)
Quarter: 2023Q4

REPORT INFORMATION
  Report Type: Spontaneous
  Country: JP (occurrence: JP)
  Receive Date: 20231227
  Receipt Date: 20231227
  Transmission Date: 20240110
  Serious: Yes (Other)
  Sender: FDA-Public Use
  Company Number: JP-PFIZER INC-PV202300206746

PATIENT
  Age: 80 Year
  Sex: Female
  Weight: 47 kg

DRUGS (1)
  1. AZULFIDINE EN-TABS [Suspect]
     Active Substance: SULFASALAZINE
     Indication: Rheumatoid arthritis
     Dosage: 500 MG, 2X/DAY
     Route: 048
     Dates: start: 20231114, end: 20231212

REACTIONS (2)
  - Liver disorder [Not Recovered/Not Resolved]
  - Platelet count decreased [Not Recovered/Not Resolved]

NARRATIVE: CASE EVENT DATE: 20231204
